FAERS Safety Report 8264856-7 (Version None)
Quarter: 2012Q2

REPORT INFORMATION
  Report Type: 
  Country: None (occurrence: None)
  Receive Date: 20120406
  Receipt Date: 20120329
  Transmission Date: 20120825
  Serious: Yes (Life-Threatening)
  Sender: FDA-Public Use
  Company Number: SI-JNJFOC-20120401964

PATIENT
  Sex: Female

DRUGS (8)
  1. AMPRIL [Concomitant]
  2. NOVORAPID [Concomitant]
  3. LANTUS [Concomitant]
  4. BLOXAN [Concomitant]
  5. DIUVER [Concomitant]
  6. XARELTO [Suspect]
     Indication: HIP ARTHROPLASTY
     Dosage: HS
     Route: 048
     Dates: start: 20120216, end: 20120313
  7. XARELTO [Suspect]
     Indication: THROMBOSIS PROPHYLAXIS
     Dosage: HS
     Route: 048
     Dates: start: 20120216, end: 20120313
  8. TRAMADOL HCL [Concomitant]

REACTIONS (2)
  - ANAEMIA [None]
  - HAEMATURIA [None]
